FAERS Safety Report 14674464 (Version 1)
Quarter: 2018Q1

REPORT INFORMATION
  Report Type: Spontaneous
  Country: CA (occurrence: CA)
  Receive Date: 20180323
  Receipt Date: 20180323
  Transmission Date: 20180509
  Serious: Yes (Disabling)
  Sender: FDA-Public Use
  Company Number: CA-BAYER-2018-051778

PATIENT
  Age: 47 Year
  Sex: Female
  Weight: 50.79 kg

DRUGS (4)
  1. ADVIL [Concomitant]
     Active Substance: IBUPROFEN
     Dosage: UNK
  2. TYLENOL [Concomitant]
     Active Substance: ACETAMINOPHEN
     Dosage: UNK
  3. MIRENA [Suspect]
     Active Substance: LEVONORGESTREL
  4. MIRENA [Suspect]
     Active Substance: LEVONORGESTREL
     Dosage: 20 MCG/24HR, CONT
     Route: 015

REACTIONS (20)
  - Feeling abnormal [Recovering/Resolving]
  - Suicidal ideation [Recovering/Resolving]
  - Abdominal pain [Recovering/Resolving]
  - Depressed mood [Recovering/Resolving]
  - Major depression [Recovering/Resolving]
  - Weight decreased [Recovering/Resolving]
  - Confusional state [Recovering/Resolving]
  - Dizziness [Recovering/Resolving]
  - Loss of personal independence in daily activities [Recovering/Resolving]
  - Back pain [Recovering/Resolving]
  - Social avoidant behaviour [Recovering/Resolving]
  - Panic attack [Recovering/Resolving]
  - Menstruation irregular [Recovering/Resolving]
  - Paranoia [Recovering/Resolving]
  - Amnesia [Recovering/Resolving]
  - Fatigue [Recovering/Resolving]
  - Intra-uterine contraceptive device removal [Recovering/Resolving]
  - Bacterial vaginosis [Recovering/Resolving]
  - Hypoaesthesia [Recovering/Resolving]
  - Menometrorrhagia [Recovering/Resolving]
